FAERS Safety Report 7439430-2 (Version None)
Quarter: 2011Q2

REPORT INFORMATION
  Report Type: 
  Country: None (occurrence: None)
  Receive Date: 20110427
  Receipt Date: 20110419
  Transmission Date: 20111010
  Serious: Yes (Hospitalization)
  Sender: FDA-Public Use
  Company Number: FR-NOVOPROD-322861

PATIENT
  Sex: Female

DRUGS (1)
  1. NORDITROPIN [Suspect]
     Dosage: UNK
     Route: 065
     Dates: start: 20091101

REACTIONS (2)
  - PANCREATITIS ACUTE [None]
  - HEPATITIS [None]
